FAERS Safety Report 6202384-0 (Version None)
Quarter: 2009Q2

REPORT INFORMATION
  Report Type: 
  Country: None (occurrence: None)
  Receive Date: 20090520
  Receipt Date: 20090507
  Transmission Date: 20091009
  Serious: Yes (Hospitalization)
  Sender: FDA-Public Use
  Company Number: 2008AL008127

PATIENT
  Age: 75 Year
  Sex: Female

DRUGS (10)
  1. DIGOXIN [Suspect]
     Dosage: 0.125MG, DAILY, PO
     Route: 048
     Dates: start: 20070724, end: 20080501
  2. TRIAMTEREN [Concomitant]
  3. LIPITOR [Concomitant]
  4. VALIUM [Concomitant]
  5. HYDROCODONE BITARTRATE [Concomitant]
  6. LISINOPRIL [Concomitant]
  7. PRILOSEC [Concomitant]
  8. AMIODARONE HCL [Concomitant]
  9. COUMADIN [Concomitant]
  10. BACTRIM [Concomitant]

REACTIONS (12)
  - ANXIETY [None]
  - ASTHENIA [None]
  - BRADYCARDIA [None]
  - CARDIOACTIVE DRUG LEVEL ABOVE THERAPEUTIC [None]
  - DEPRESSION [None]
  - DIZZINESS [None]
  - FATIGUE [None]
  - HYPERKALAEMIA [None]
  - HYPOTENSION [None]
  - MULTIPLE INJURIES [None]
  - RENAL FAILURE [None]
  - THERAPEUTIC AGENT TOXICITY [None]
